FAERS Safety Report 4655119-7 (Version None)
Quarter: 2005Q2

REPORT INFORMATION
  Report Type: 
  Country: None (occurrence: None)
  Receive Date: 20050505
  Receipt Date: 20050427
  Transmission Date: 20051028
  Serious: Yes (Hospitalization)
  Sender: FDA-Public Use
  Company Number: 12947594

PATIENT
  Age: 25 Year
  Sex: Male

DRUGS (1)
  1. NALTREXONE HCL [Suspect]
     Indication: ALCOHOLISM
     Dosage: 25 MILLIGRAM
     Route: 048
     Dates: start: 20050415, end: 20050416

REACTIONS (1)
  - GRAND MAL CONVULSION [None]
